FAERS Safety Report 23848724 (Version 3)
Quarter: 2024Q4

REPORT INFORMATION
  Report Type: Spontaneous
  Country: US (occurrence: US)
  Receive Date: 20240513
  Receipt Date: 20241203
  Transmission Date: 20250115
  Serious: No
  Sender: PFIZER
  Company Number: US-PFIZER INC-PV202400031440

PATIENT
  Age: 86 Year
  Sex: Male
  Weight: 78.458 kg

DRUGS (2)
  1. TALZENNA [Suspect]
     Active Substance: TALAZOPARIB TOSYLATE
     Indication: Prostate cancer
     Dosage: 0.35 MG, 1X/DAY (TAKE 1 CAPSULE (0.35 MG) BY MOUTH ONCE DAILY)
     Route: 048
  2. TALZENNA [Suspect]
     Active Substance: TALAZOPARIB TOSYLATE
     Dosage: 0.1 MG

REACTIONS (1)
  - Anaemia [Unknown]
